FAERS Safety Report 15113809 (Version 4)
Quarter: 2023Q2

REPORT INFORMATION
  Report Type: Report from Study
  Country: JP (occurrence: JP)
  Receive Date: 20180706
  Receipt Date: 20230627
  Transmission Date: 20230722
  Serious: Yes (Death, Hospitalization, Other)
  Sender: FDA-Public Use
  Company Number: JP-CHUGAI-A2018030126ROCHE

PATIENT
  Age: 12 Year
  Sex: Male

DRUGS (3)
  1. TOCILIZUMAB [Suspect]
     Active Substance: TOCILIZUMAB
     Indication: Cytokine release syndrome
     Route: 041
     Dates: start: 20160728, end: 20160728
  2. TOCILIZUMAB [Suspect]
     Active Substance: TOCILIZUMAB
     Route: 041
     Dates: start: 20160729
  3. TISAGENLECLEUCEL [Suspect]
     Active Substance: TISAGENLECLEUCEL
     Indication: Acute lymphocytic leukaemia
     Route: 041

REACTIONS (16)
  - Acute kidney injury [Recovered/Resolved]
  - Tumour lysis syndrome [Recovered/Resolved]
  - Blood creatine phosphokinase increased [Recovering/Resolving]
  - Hypoxia [Recovered/Resolved]
  - Blood creatinine increased [Unknown]
  - Disseminated intravascular coagulation [Unknown]
  - Cytokine release syndrome [Recovered/Resolved]
  - Hepatic function abnormal [Recovering/Resolving]
  - White blood cell count decreased [Recovered/Resolved]
  - Neutrophil count decreased [Not Recovered/Not Resolved]
  - Upper respiratory tract infection [Recovered/Resolved]
  - Death [Fatal]
  - Otitis externa [Recovered/Resolved]
  - Hepatic function abnormal [Not Recovered/Not Resolved]
  - Nasopharyngitis [Recovered/Resolved]
  - Otitis media [Recovered/Resolved]

NARRATIVE: CASE EVENT DATE: 20160728
